FAERS Safety Report 10177175 (Version 1)
Quarter: 2014Q2

REPORT INFORMATION
  Report Type: Spontaneous
  Country: US (occurrence: US)
  Receive Date: 20140516
  Receipt Date: 20140516
  Transmission Date: 20141212
  Serious: No
  Sender: FDA-Public Use
  Company Number: US-PFIZER INC-2014132060

PATIENT
  Age: 32 Year
  Sex: Female

DRUGS (1)
  1. ADVIL [Suspect]
     Indication: HEADACHE
     Dosage: UNK

REACTIONS (4)
  - Feeling abnormal [Unknown]
  - Malaise [Unknown]
  - Impaired work ability [Unknown]
  - Product label issue [Unknown]
